FAERS Safety Report 7741036-2 (Version None)
Quarter: 2011Q3

REPORT INFORMATION
  Report Type: 
  Country: None (occurrence: None)
  Receive Date: 20110909
  Receipt Date: 20110826
  Transmission Date: 20111222
  Serious: Yes (Other)
  Sender: FDA-Public Use
  Company Number: GB-GENENTECH-266549

PATIENT
  Sex: Female
  Weight: 45.8 kg

DRUGS (23)
  1. AMLODIPINE [Concomitant]
     Indication: RAYNAUD'S PHENOMENON
     Dosage: 5 MG, UNK
     Dates: start: 20020615
  2. CALCICHEW D3 [Concomitant]
     Indication: OSTEOPOROSIS
     Dosage: 2 DF, UNK
     Dates: start: 20030615
  3. IMMUNE GLOBULIN INTRAVENOUS (HUMAN) [Concomitant]
     Indication: PRODUCT USED FOR UNKNOWN INDICATION
  4. PROBENECID [Concomitant]
     Indication: PRODUCT USED FOR UNKNOWN INDICATION
  5. LORATADINE [Concomitant]
     Indication: HYPERSENSITIVITY
     Dosage: 1 DF, UNK
     Dates: start: 20040615
  6. PREDNISOLONE [Suspect]
     Dosage: 20 MG, UNK
  7. CORTICOSTEROIDS (UNK INGREDIENTS) [Suspect]
     Indication: SYSTEMIC LUPUS ERYTHEMATOSUS
     Dosage: UNK
  8. CLARITIN [Concomitant]
     Indication: HYPERSENSITIVITY
     Dosage: 1 DF, UNK
  9. FOLIC ACID [Concomitant]
     Indication: PRODUCT USED FOR UNKNOWN INDICATION
  10. METHYLPREDNISOLONE [Concomitant]
     Indication: PAIN
  11. MABTHERA [Suspect]
     Dosage: 375 UNK, X1
     Route: 042
     Dates: start: 20051101
  12. AZATHIOPRINE [Suspect]
     Indication: SYSTEMIC LUPUS ERYTHEMATOSUS
  13. HYDROXYCHLOROQUINE SULFATE [Concomitant]
     Indication: SYSTEMIC LUPUS ERYTHEMATOSUS
     Dosage: 300 MG, UNK
     Dates: start: 19820615, end: 19920615
  14. HYDROXYCHLOROQUINE SULFATE [Concomitant]
     Dosage: UNK
     Dates: start: 20020615
  15. ACYCLOVIR [Concomitant]
     Indication: PRODUCT USED FOR UNKNOWN INDICATION
  16. MABTHERA [Suspect]
     Indication: SYSTEMIC LUPUS ERYTHEMATOSUS
     Dosage: 375 MG/M2, UNK
     Route: 042
     Dates: start: 20020801, end: 20050901
  17. METHYLPREDNISOLONE [Concomitant]
     Indication: CYANOSIS
     Dosage: UNK %, QD
     Dates: start: 19990615, end: 20020615
  18. MABTHERA [Suspect]
     Dosage: 375 MG/M2, UNK
     Route: 042
     Dates: start: 20050415, end: 20050515
  19. PREDNISOLONE [Suspect]
     Indication: SYSTEMIC LUPUS ERYTHEMATOSUS
     Dosage: 20 MG, TID
     Route: 065
     Dates: start: 20020615, end: 20030615
  20. NUVELLE [Concomitant]
     Indication: PREMATURE MENOPAUSE
     Dosage: 1 DF, UNK
     Dates: start: 19930615
  21. CYCLOPHOSPHAMIDE [Suspect]
     Indication: SYSTEMIC LUPUS ERYTHEMATOSUS
  22. LEVOTHYROXINE SODIUM [Concomitant]
     Indication: HYPOTHYROIDISM
     Dosage: 75 UNK, UNK
     Dates: start: 19900601
  23. LEVOMEPROMAZINE [Concomitant]
     Indication: PRODUCT USED FOR UNKNOWN INDICATION

REACTIONS (16)
  - B-LYMPHOCYTE COUNT DECREASED [None]
  - PNEUMONIA [None]
  - PROGRESSIVE MULTIFOCAL LEUKOENCEPHALOPATHY [None]
  - ATAXIA [None]
  - DYSARTHRIA [None]
  - WEIGHT DECREASED [None]
  - DYSPHAGIA [None]
  - JC VIRUS INFECTION [None]
  - APHASIA [None]
  - PNEUMONIA ASPIRATION [None]
  - BALANCE DISORDER [None]
  - PAST-POINTING [None]
  - RESPIRATORY FAILURE [None]
  - CEREBELLAR SYNDROME [None]
  - NYSTAGMUS [None]
  - VISION BLURRED [None]
